FAERS Safety Report 6598187-8 (Version None)
Quarter: 2010Q1

REPORT INFORMATION
  Report Type: 
  Country: None (occurrence: None)
  Receive Date: 20100224
  Receipt Date: 20050114
  Transmission Date: 20100710
  Serious: No
  Sender: FDA-Public Use
  Company Number: US-ALLERGAN-200308719

PATIENT
  Age: 17 Year
  Sex: Female
  Weight: 50 kg

DRUGS (1)
  1. BOTOX [Suspect]
     Indication: DYSTONIA
     Dosage: 400UNITS, PRN
     Route: 030

REACTIONS (4)
  - BLOOD CREATINE PHOSPHOKINASE [None]
  - DRUG INEFFECTIVE [None]
  - MUSCLE SWELLING [None]
  - MYALGIA [None]
